FAERS Safety Report 18919844 (Version 1)
Quarter: 2021Q1

REPORT INFORMATION
  Report Type: Other
  Country: DE (occurrence: DE)
  Receive Date: 20210222
  Receipt Date: 20210222
  Transmission Date: 20210420
  Serious: Yes (Hospitalization, Other)
  Sender: FDA-Public Use
  Company Number: DE-CELLTRION INC.-2021DE001939

PATIENT

DRUGS (8)
  1. TRASTUZUMAB (UNKNOWN) [Suspect]
     Active Substance: TRASTUZUMAB
     Indication: BREAST CANCER METASTATIC
     Dosage: 6 MG/KG, EVERY 21 DAYS (DAY 1 ON 08/DEC/2018, MOST RECENT DOSE OF TRASTUZUMAB WAS RECEIVED.) (ADDITI
     Route: 042
     Dates: start: 20171006
  2. LOSARTAN. [Concomitant]
     Active Substance: LOSARTAN
     Indication: HYPERTENSION
  3. PACLITAXEL. [Suspect]
     Active Substance: PACLITAXEL
     Indication: BREAST CANCER METASTATIC
     Dosage: 80 MG/M2, EVERY 7 DAYS (DAY 1, 8 AND 15 ON 08/DEC/2018, MOST RECENT DOSE OF PACLITAXEL WAS RECEIVED)
     Route: 065
     Dates: start: 20171006
  4. PERTUZUMAB. [Suspect]
     Active Substance: PERTUZUMAB
     Indication: BREAST CANCER METASTATIC
     Dosage: 420 MG, EVERY 21 DAYS (DAY 1 ON 08/DEC/2018, MOST RECENT DOSE OF PERTUZUMAB WAS RECEIVED.) (DRUG INT
     Route: 065
     Dates: start: 20171006
  5. METOPROLOL. [Concomitant]
     Active Substance: METOPROLOL
     Dosage: 47.5 MG
     Route: 065
  6. LOSARTAN. [Concomitant]
     Active Substance: LOSARTAN
     Dosage: UNK
     Route: 065
  7. ZOLEDRONIC ACID [Suspect]
     Active Substance: ZOLEDRONIC ACID
     Indication: BREAST CANCER METASTATIC
     Dosage: 4 MG, EVERY 28 DAYS (ON 01/DEC/2017, RECEIVED MOST RECENT DOSE OF ZOLEDRONIC ACID.)
     Route: 065
     Dates: start: 20171103
  8. METOPROLOL. [Concomitant]
     Active Substance: METOPROLOL
     Indication: HYPERTENSION

REACTIONS (9)
  - Nasopharyngitis [Recovered/Resolved]
  - General physical health deterioration [Unknown]
  - Toxic epidermal necrolysis [Recovered/Resolved]
  - Dyspnoea [Recovered/Resolved]
  - Nail discolouration [Recovered/Resolved]
  - Malaise [Recovered/Resolved]
  - Diarrhoea [Recovered/Resolved]
  - Decreased appetite [Recovered/Resolved]
  - Skin toxicity [Recovered/Resolved]

NARRATIVE: CASE EVENT DATE: 20171016
